FAERS Safety Report 6367021-3 (Version None)
Quarter: 2009Q3

REPORT INFORMATION
  Report Type: 
  Country: None (occurrence: None)
  Receive Date: 20090915
  Receipt Date: 20090908
  Transmission Date: 20100115
  Serious: Yes (Other)
  Sender: FDA-Public Use
  Company Number: 2009S1015950

PATIENT
  Age: 19 Year
  Sex: Female

DRUGS (1)
  1. AMNESTEEM [Suspect]
     Dosage: 20 MG; 3 TIMES A DAY; ORAL
     Route: 048
     Dates: start: 20081231, end: 20090523

REACTIONS (3)
  - DRUG EXPOSURE DURING PREGNANCY [None]
  - PREGNANCY [None]
  - TREATMENT NONCOMPLIANCE [None]
